FAERS Safety Report 10873108 (Version 2)
Quarter: 2015Q1

REPORT INFORMATION
  Report Type: Report from Study
  Country: US (occurrence: US)
  Receive Date: 20150227
  Receipt Date: 20150316
  Transmission Date: 20150721
  Serious: Yes (Life-Threatening, Hospitalization, Disabling)
  Sender: FDA-Public Use
  Company Number: US-ROCHE-1545034

PATIENT
  Age: 54 Year
  Sex: Male
  Weight: 90.8 kg

DRUGS (1)
  1. RANIBIZUMAB [Suspect]
     Active Substance: RANIBIZUMAB
     Indication: CHOROID MELANOMA
     Dosage: FREQUENCY 60 DAYS?THERAPY : 14/APR/2009, 15/JUN/2009, 05/AUG/2009, 28/NOV/2009
     Route: 050

REACTIONS (1)
  - Colloid brain cyst [Recovered/Resolved]

NARRATIVE: CASE EVENT DATE: 20091113
